FAERS Safety Report 5975179-0 (Version None)
Quarter: 2008Q4

REPORT INFORMATION
  Report Type: 
  Country: None (occurrence: None)
  Receive Date: 20081202
  Receipt Date: 20080807
  Transmission Date: 20090506
  Serious: No
  Sender: FDA-Public Use
  Company Number: US-ABBOTT-08P-163-0469173-00

PATIENT
  Sex: Female
  Weight: 72.64 kg

DRUGS (5)
  1. LUPRON DEPOT [Suspect]
     Indication: ENDOMETRIOSIS
     Route: 030
     Dates: start: 20080501
  2. BUPROPION HCL [Concomitant]
     Indication: DEPRESSION
     Route: 048
  3. BUPROPION HCL [Concomitant]
     Indication: ANXIETY
  4. VENLAFAXINE HCL [Concomitant]
     Indication: DEPRESSION
     Route: 048
  5. VENLAFAXINE HCL [Concomitant]
     Indication: ANXIETY

REACTIONS (13)
  - ABDOMINAL DISTENSION [None]
  - AMNESIA [None]
  - ANXIETY [None]
  - HEADACHE [None]
  - HOT FLUSH [None]
  - HYPERHIDROSIS [None]
  - IRRITABILITY [None]
  - NERVOUSNESS [None]
  - PRURITUS [None]
  - PSYCHOMOTOR HYPERACTIVITY [None]
  - RASH [None]
  - SLEEP DISORDER [None]
  - UNEVALUABLE EVENT [None]
